FAERS Safety Report 23942342 (Version 3)
Quarter: 2024Q2

REPORT INFORMATION
  Report Type: Spontaneous
  Country: FR (occurrence: FR)
  Receive Date: 20240605
  Receipt Date: 20240618
  Transmission Date: 20240715
  Serious: Yes (Other)
  Sender: FDA-Public Use
  Company Number: FR-PFIZER INC-PV202400067754

PATIENT
  Age: 12 Year
  Sex: Female
  Weight: 42 kg

DRUGS (12)
  1. MIDAZOLAM [Interacting]
     Active Substance: MIDAZOLAM
     Indication: Sedative therapy
     Dosage: UNK
     Route: 065
  2. VORICONAZOLE [Interacting]
     Active Substance: VORICONAZOLE
     Indication: Disseminated trichosporonosis
     Dosage: 300 MILLIGRAM, BID (300 MG, 2X/DAY, (14 MG/KG/DAY)STOPPED FOR 11 MONTHS UPON MARCH 2019)
     Route: 065
     Dates: start: 201709
  3. VORICONAZOLE [Interacting]
     Active Substance: VORICONAZOLE
     Dosage: 440 MILLIGRAM, BID (440 MG, 2X/DAY)
     Route: 065
  4. VORICONAZOLE [Interacting]
     Active Substance: VORICONAZOLE
     Dosage: 400 MILLIGRAM, BID (400 MG, 2X/DAY)
     Route: 065
  5. VORICONAZOLE [Interacting]
     Active Substance: VORICONAZOLE
     Dosage: 200 MILLIGRAM, BID (200 MG, 2X/DAY)
     Route: 065
  6. VORICONAZOLE [Interacting]
     Active Substance: VORICONAZOLE
     Dosage: 500 MILLIGRAM, BID (500 MG, 2X/DAY)
     Route: 065
  7. VORICONAZOLE [Interacting]
     Active Substance: VORICONAZOLE
     Dosage: 600 MILLIGRAM, BID (300 MG, BID,(14 MG/KG/DAY))
     Route: 065
     Dates: start: 202001
  8. ISAVUCONAZOLE [Suspect]
     Active Substance: ISAVUCONAZOLE
     Indication: Product used for unknown indication
     Dosage: UNK
     Route: 065
  9. POSACONAZOLE [Suspect]
     Active Substance: POSACONAZOLE
     Indication: Product used for unknown indication
     Dosage: UNK
     Route: 065
  10. BUSULFAN [Concomitant]
     Active Substance: BUSULFAN
     Indication: Product used for unknown indication
     Dosage: UNK
     Route: 065
  11. FLUDARABINE [Concomitant]
     Active Substance: FLUDARABINE PHOSPHATE
     Indication: Product used for unknown indication
     Dosage: UNK
     Route: 065
  12. GLOBULIN [Concomitant]
     Indication: Product used for unknown indication
     Dosage: UNK
     Route: 065

REACTIONS (10)
  - Hepatic cytolysis [Recovering/Resolving]
  - Cholestasis [Recovering/Resolving]
  - Drug interaction [Unknown]
  - Drug abuse [Unknown]
  - Overdose [Unknown]
  - Hepatic enzyme increased [Unknown]
  - Agitation [Recovering/Resolving]
  - Drug level above therapeutic [Unknown]
  - Drug ineffective [Unknown]
  - Off label use [Unknown]
